FAERS Safety Report 16481330 (Version 1)
Quarter: 2019Q2

REPORT INFORMATION
  Report Type: Report from Study
  Country: None (occurrence: US)
  Receive Date: 20190626
  Receipt Date: 20190626
  Transmission Date: 20190711
  Serious: Yes (Hospitalization)
  Sender: FDA-Public Use
  Company Number: US-ABBVIE-19K-163-2782313-00

PATIENT
  Age: 47 Year
  Sex: Female

DRUGS (2)
  1. VENCLEXTA [Suspect]
     Active Substance: VENETOCLAX
     Indication: CHRONIC LYMPHOCYTIC LEUKAEMIA
     Route: 048
     Dates: start: 20180531
  2. VENCLEXTA [Suspect]
     Active Substance: VENETOCLAX
     Indication: CHRONIC LYMPHOCYTIC LEUKAEMIA

REACTIONS (10)
  - Hypophagia [Recovered/Resolved]
  - Pyrexia [Not Recovered/Not Resolved]
  - Impaired gastric emptying [Recovered/Resolved]
  - Pyrexia [Recovered/Resolved]
  - Pyrexia [Recovered/Resolved]
  - Impaired gastric emptying [Recovered/Resolved]
  - Impaired gastric emptying [Not Recovered/Not Resolved]
  - Hypophagia [Not Recovered/Not Resolved]
  - Hypophagia [Recovered/Resolved]
  - Ill-defined disorder [Unknown]

NARRATIVE: CASE EVENT DATE: 20190419
